FAERS Safety Report 5679190-9 (Version None)
Quarter: 2008Q1

REPORT INFORMATION
  Report Type: 
  Country: None (occurrence: None)
  Receive Date: 20080321
  Receipt Date: 20080310
  Transmission Date: 20080703
  Serious: Yes (Other)
  Sender: FDA-Public Use
  Company Number: 2008AL001555

PATIENT
  Age: 42 Year
  Sex: Male

DRUGS (10)
  1. CITALOPRAM HYDROBROMIDE [Suspect]
     Dosage: 20 MG;QD
     Dates: start: 20071129, end: 20071219
  2. LANSOPRAZOLE [Concomitant]
  3. DEPAKOTE [Concomitant]
  4. OLANZAPINE [Concomitant]
  5. LAMOTRIGINE [Concomitant]
  6. FERROUS SULFATE TAB [Concomitant]
  7. PROCYCLIDINE HYDROCHLORIDE 2MG TAB [Concomitant]
  8. HALOPERIDOL [Concomitant]
  9. ACETAMINOPHEN [Concomitant]
  10. DIAZEPAM [Concomitant]

REACTIONS (2)
  - FALL [None]
  - SINUS BRADYCARDIA [None]
